FAERS Safety Report 25857134 (Version 1)
Quarter: 2025Q3

REPORT INFORMATION
  Report Type: Spontaneous
  Country: GB (occurrence: GB)
  Receive Date: 20250929
  Receipt Date: 20250929
  Transmission Date: 20251020
  Serious: Yes (Other)
  Sender: ORGANON
  Company Number: GB-ORGANON-O2509GBR002220

PATIENT
  Age: 45 Year
  Sex: Female

DRUGS (3)
  1. NEXPLANON [Suspect]
     Active Substance: ETONOGESTREL
  2. NEXPLANON [Concomitant]
     Active Substance: ETONOGESTREL
  3. NEXPLANON [Concomitant]
     Active Substance: ETONOGESTREL

REACTIONS (4)
  - Vaginal haemorrhage [Not Recovered/Not Resolved]
  - Blood urine present [Not Recovered/Not Resolved]
  - Abdominal pain upper [Not Recovered/Not Resolved]
  - Product use issue [Unknown]

NARRATIVE: CASE EVENT DATE: 20221004
